FAERS Safety Report 4274967-9 (Version None)
Quarter: 2004Q1

REPORT INFORMATION
  Report Type: 
  Country: None (occurrence: None)
  Receive Date: 20040120
  Receipt Date: 20040108
  Transmission Date: 20041129
  Serious: Yes (Life-Threatening, Hospitalization)
  Sender: FDA-Public Use
  Company Number: 7153

PATIENT
  Age: 8 Year
  Sex: Male

DRUGS (3)
  1. VINCRISTINE [Suspect]
     Indication: ACUTE LYMPHOCYTIC LEUKAEMIA
     Dosage: 1.5 MG/M2 WEEKLY IV
     Route: 042
  2. ITRACONAZOLE [Suspect]
     Indication: PROPHYLAXIS
     Dosage: 5 MG/KG
  3. DEXAMETHASONE [Concomitant]

REACTIONS (7)
  - DRUG INTERACTION [None]
  - EYELID PTOSIS [None]
  - GRAND MAL CONVULSION [None]
  - ILEUS PARALYTIC [None]
  - INAPPROPRIATE ANTIDIURETIC HORMONE SECRETION [None]
  - NEUROTOXICITY [None]
  - STATUS EPILEPTICUS [None]
